FAERS Safety Report 9394066 (Version 1)
Quarter: 2013Q3

REPORT INFORMATION
  Report Type: Spontaneous
  Country: CA (occurrence: CA)
  Receive Date: 20130710
  Receipt Date: 20130710
  Transmission Date: 20140515
  Serious: Yes (Other)
  Sender: FDA-Public Use
  Company Number: CA-NICOBRDEVP-2013-09451

PATIENT
  Sex: Male

DRUGS (1)
  1. QUETIAPINE (UNKNOWN) [Suspect]
     Indication: INSOMNIA
     Dosage: 12.5 MG, DAILY

REACTIONS (6)
  - Brain oedema [Unknown]
  - Headache [Unknown]
  - Hyperaesthesia [Unknown]
  - Mass [Unknown]
  - Pruritus [Unknown]
  - Herpes zoster [Unknown]
